FAERS Safety Report 12741634 (Version 1)
Quarter: 2016Q3

REPORT INFORMATION
  Report Type: Other
  Country: FR (occurrence: FR)
  Receive Date: 20160914
  Receipt Date: 20160914
  Transmission Date: 20161109
  Serious: Yes (Death)
  Sender: FDA-Public Use
  Company Number: FR-PFM-FR-2015-4868

PATIENT
  Age: 8 Year
  Sex: Female

DRUGS (32)
  1. HOLOXAN [Suspect]
     Active Substance: IFOSFAMIDE
     Dosage: 3 G/M2, QD (1/DAY), ON DAY 1 AND 2, FIRST AI COURSE
     Route: 042
     Dates: start: 20100604
  2. HOLOXAN [Suspect]
     Active Substance: IFOSFAMIDE
     Dosage: 3 G/M2, QD (1/DAY), ON DAY 1 AND 2, SECOND AI COURSE
     Route: 042
     Dates: start: 201007
  3. HOLOXAN [Suspect]
     Active Substance: IFOSFAMIDE
     Dosage: POST OPERATIVE VI COURSE (DOSE WAS NOT REPORTED)
     Route: 065
     Dates: start: 20100901
  4. ADRIAMYCIN [Suspect]
     Active Substance: DOXORUBICIN HYDROCHLORIDE
     Dosage: 60 MG/M2, 1 IN 1 CYCLICAL,  ON DAY 1, SECOND API COURSE
     Route: 065
     Dates: start: 20100623
  5. LAROXYL [Concomitant]
     Active Substance: AMITRIPTYLINE
     Indication: PROPHYLAXIS
     Dosage: 1 TABLET OF 25 MG, QD (1/DAY)
     Route: 065
     Dates: start: 201005
  6. NAVELBINE [Suspect]
     Active Substance: VINORELBINE TARTRATE
     Indication: CHEMOTHERAPY
     Dosage: UNK
     Route: 042
     Dates: start: 20100930
  7. HOLOXAN [Suspect]
     Active Substance: IFOSFAMIDE
     Dosage: 3 G/M2, QD (1/DAY), ON DAY 2 AND 3, FIRST API COURSE
     Route: 042
     Dates: start: 201005
  8. UROMITEXAN [Suspect]
     Active Substance: MESNA
     Indication: PROPHYLAXIS
     Dosage: DOSAGE WAS REDUCED FROM 50%
     Route: 042
  9. UROMITEXAN [Suspect]
     Active Substance: MESNA
     Indication: OSTEOSARCOMA
     Dosage: UNK
     Route: 042
     Dates: start: 20100812
  10. ADRIAMYCIN [Suspect]
     Active Substance: DOXORUBICIN HYDROCHLORIDE
     Dosage: 60 MG/M2, 1 IN 1 CYCLICAL,  ON DAY 1, POST-OPERATIVE AI COURSE
     Route: 065
     Dates: start: 20100901
  11. CYCLOPHOSPHAMIDE. [Suspect]
     Active Substance: CYCLOPHOSPHAMIDE
     Indication: CHEMOTHERAPY
     Dosage: UNK
     Route: 065
     Dates: start: 20100930
  12. ETOPOSIDE. [Suspect]
     Active Substance: ETOPOSIDE
     Dosage: POST-OPERATIVE  FIRST VI COURSE
     Route: 065
     Dates: start: 20100901
  13. DOXORUBICIN EBEWE [Suspect]
     Active Substance: DOXORUBICIN
     Indication: OSTEOSARCOMA
     Dosage: UNK
     Route: 042
     Dates: start: 20100811, end: 20100811
  14. ADRIAMYCIN [Suspect]
     Active Substance: DOXORUBICIN HYDROCHLORIDE
     Dosage: 60 MG/M2, 1 IN 1 CYCLICAL,  ON DAY 1, FIRST AI COURSE
     Route: 065
     Dates: start: 20100604
  15. NAVELBINE [Suspect]
     Active Substance: VINORELBINE TARTRATE
     Indication: OSTEOSARCOMA
  16. ADRIAMYCIN [Suspect]
     Active Substance: DOXORUBICIN HYDROCHLORIDE
     Dosage: 60 MG/M2, 1 IN 1 CYCLICAL,  ON DAY 1, THIRD API COURSE
     Route: 065
     Dates: start: 20100812
  17. LAMICTAL [Concomitant]
     Active Substance: LAMOTRIGINE
     Indication: EPILEPSY
     Route: 065
  18. HOLOXAN [Suspect]
     Active Substance: IFOSFAMIDE
     Dosage: 3 G/M2, QD (1/DAY), ON DAY 2, THIRD API COURSE
     Route: 042
     Dates: start: 20100812, end: 20100812
  19. ETOPOSIDE. [Suspect]
     Active Substance: ETOPOSIDE
     Indication: OSTEOSARCOMA
     Dosage: 75 MG/M2, QD (1/DAY), FROM DAY 1 TO DAY 4, FIRST VI COURSE
     Route: 065
     Dates: start: 201004
  20. BACTRIM [Concomitant]
     Active Substance: SULFAMETHOXAZOLE\TRIMETHOPRIM
     Indication: PRODUCT USED FOR UNKNOWN INDICATION
     Dosage: 800 MG, THRICE PER WEEK, ON MONDAY, WEDNESDAY AND FRIDAY
     Route: 065
     Dates: start: 2006
  21. HOLOXAN [Suspect]
     Active Substance: IFOSFAMIDE
     Dosage: 3 G/M2, QD (1/DAY), ON DAY 2 AND 3, SECOND API COURSE
     Route: 042
     Dates: start: 20100623
  22. CISPLATIN. [Suspect]
     Active Substance: CISPLATIN
     Indication: OSTEOSARCOMA
     Dosage: 100 MG/M2, ON DAY 1, FIRST API COURSE
     Route: 065
     Dates: start: 201005
  23. CISPLATIN. [Suspect]
     Active Substance: CISPLATIN
     Dosage: 100 MG/M2, ON DAY 1, SECOND API COURSE
     Route: 065
     Dates: start: 20100623
  24. CISPLATIN. [Suspect]
     Active Substance: CISPLATIN
     Dosage: 100 MG/M2, ON DAY 1, THIRD API COURSE
     Route: 065
     Dates: start: 20100812
  25. ADRIAMYCIN [Suspect]
     Active Substance: DOXORUBICIN HYDROCHLORIDE
     Dosage: 60 MG/M2, 1 IN 1 CYCLICAL,  ON DAY 1, SECOND AI COURSE
     Route: 065
     Dates: start: 201007
  26. ADRIAMYCIN [Suspect]
     Active Substance: DOXORUBICIN HYDROCHLORIDE
     Dosage: 60 MG/M2, 1 IN 1 CYCLICAL,  ON DAY 1, AI COURSE
     Route: 065
     Dates: start: 20100923
  27. ZELITREX [Concomitant]
     Active Substance: VALACYCLOVIR HYDROCHLORIDE
     Indication: PRODUCT USED FOR UNKNOWN INDICATION
     Dosage: 1 DOSAGE FORM
     Route: 065
     Dates: start: 2006
  28. HOLOXAN [Suspect]
     Active Substance: IFOSFAMIDE
     Indication: OSTEOSARCOMA
     Dosage: 3 G/M2, QD (1/DAY), FIRST VI COURSE
     Route: 042
     Dates: start: 201004
  29. HOLOXAN [Suspect]
     Active Substance: IFOSFAMIDE
     Dosage: 3 G/M2, QD (1/DAY), ON DAY 1 AND 2, THIRD AI COURSE
     Route: 042
     Dates: start: 20100923
  30. METHOTREXATE. [Suspect]
     Active Substance: METHOTREXATE
     Indication: OSTEOSARCOMA
     Dosage: FIRST OF 3 COURSES (1 IN 1 CYCLICAL)
     Route: 065
     Dates: start: 20100316
  31. CISPLATIN MYLAN [Suspect]
     Active Substance: CISPLATIN
     Indication: OSTEOSARCOMA
     Dosage: UNK
     Route: 042
     Dates: start: 20100811, end: 20100811
  32. ADRIAMYCIN [Suspect]
     Active Substance: DOXORUBICIN HYDROCHLORIDE
     Indication: OSTEOSARCOMA
     Dosage: 60 MG/M2, 1 IN 1 CYCLICAL,  ON DAY 1, FIRST API COURSE
     Route: 065
     Dates: start: 201005

REACTIONS (3)
  - Product use issue [Unknown]
  - Death [Fatal]
  - Off label use [Unknown]

NARRATIVE: CASE EVENT DATE: 20100930
